FAERS Safety Report 20432696 (Version 1)
Quarter: 2022Q1

REPORT INFORMATION
  Report Type: Spontaneous
  Country: US (occurrence: US)
  Receive Date: 20220204
  Receipt Date: 20220204
  Transmission Date: 20220423
  Serious: No
  Sender: FDA-Public Use
  Company Number: US-drreddys-SPO/USA/22/0146456

PATIENT
  Age: 52 Year
  Sex: Female
  Weight: 62.1 kg

DRUGS (3)
  1. NICOTINE [Suspect]
     Active Substance: NICOTINE
     Indication: Tobacco user
     Dosage: ONE PATCH A DAY
     Route: 062
     Dates: start: 20220127
  2. NICOTINE [Suspect]
     Active Substance: NICOTINE
     Dosage: ONE PATCH A DAY
     Route: 062
     Dates: start: 20220128
  3. LAMOTRIGINE [Concomitant]
     Active Substance: LAMOTRIGINE
     Indication: Product used for unknown indication

REACTIONS (5)
  - Feeling abnormal [Unknown]
  - Illness [Unknown]
  - Dizziness [Unknown]
  - Nausea [Unknown]
  - Treatment noncompliance [Unknown]

NARRATIVE: CASE EVENT DATE: 20220127
